APPROVED DRUG PRODUCT: T-PHYL
Active Ingredient: THEOPHYLLINE
Strength: 200MG
Dosage Form/Route: TABLET, EXTENDED RELEASE;ORAL
Application: A088253 | Product #001
Applicant: PHARMACEUTICAL RESEARCH ASSOC INC
Approved: Aug 17, 1983 | RLD: No | RS: No | Type: DISCN